FAERS Safety Report 11117981 (Version 2)
Quarter: 2015Q2

REPORT INFORMATION
  Report Type: Spontaneous
  Country: US (occurrence: None)
  Receive Date: 20150514
  Receipt Date: 20150616
  Transmission Date: 20150821
  Serious: Yes (Hospitalization, Other)
  Sender: FDA-Public Use
  Company Number: 2015MAR00006

PATIENT
  Age: 63 Year
  Sex: Male

DRUGS (8)
  1. CARAFATE [Concomitant]
     Active Substance: SUCRALFATE
  2. CELEBREX [Concomitant]
     Active Substance: CELECOXIB
  3. PEPCID [Suspect]
     Active Substance: FAMOTIDINE
     Indication: ULCER
     Route: 048
     Dates: start: 201411
  4. ASPIRIN (ACETYLSALICYLIC ACID) [Concomitant]
     Active Substance: ASPIRIN
  5. FLEXERIL [Concomitant]
     Active Substance: CYCLOBENZAPRINE HYDROCHLORIDE
  6. UNSPECIFIED VITAMINS (DIETARY SUPPLEMENT) [Concomitant]
  7. PROTONIX [Concomitant]
     Active Substance: PANTOPRAZOLE SODIUM
  8. UNSPECIFIED MEDICATION(S) [Concomitant]

REACTIONS (15)
  - Arthralgia [None]
  - Sleep apnoea syndrome [None]
  - Abdominal pain upper [None]
  - Atrial fibrillation [None]
  - Cardiac imaging procedure abnormal [None]
  - Pleuritic pain [None]
  - Dizziness [None]
  - Nausea [None]
  - Cardiomyopathy [None]
  - Respiration abnormal [None]
  - Coronary artery disease [None]
  - Abdominal distension [None]
  - Left ventricular dysfunction [None]
  - Blood thyroid stimulating hormone increased [None]
  - Pulmonary embolism [None]
